FAERS Safety Report 21044747 (Version 2)
Quarter: 2022Q3

REPORT INFORMATION
  Report Type: Spontaneous
  Country: FR (occurrence: FR)
  Receive Date: 20220705
  Receipt Date: 20220707
  Transmission Date: 20221026
  Serious: Yes (Death)
  Sender: FDA-Public Use
  Company Number: FR-PFIZER INC-202200927118

PATIENT
  Age: 85 Year
  Sex: Male
  Weight: 58 kg

DRUGS (1)
  1. VYNDAQEL [Suspect]
     Active Substance: TAFAMIDIS MEGLUMINE
     Indication: Cardiac amyloidosis
     Dosage: 20 MG, DAILY

REACTIONS (1)
  - Death [Fatal]

NARRATIVE: CASE EVENT DATE: 20200309
